FAERS Safety Report 7768191-2 (Version None)
Quarter: 2011Q3

REPORT INFORMATION
  Report Type: 
  Country: None (occurrence: None)
  Receive Date: 20110922
  Receipt Date: 20110922
  Transmission Date: 20111222
  Serious: Yes (Other)
  Sender: FDA-Public Use
  Company Number: None

PATIENT
  Sex: Female
  Weight: 65.77 kg

DRUGS (7)
  1. BENADRYL [Concomitant]
  2. QVAR 40 [Suspect]
     Indication: ASTHMA
     Dosage: 2 PUFFS
     Route: 048
     Dates: start: 20110914, end: 20110914
  3. ALBUTEROL [Concomitant]
  4. PAXIL [Concomitant]
  5. JOLESSA [Concomitant]
  6. WELLBUTRIN [Concomitant]
  7. ZYRTEC [Concomitant]

REACTIONS (2)
  - DYSGEUSIA [None]
  - BREATH ODOUR [None]
